FAERS Safety Report 6716113-5 (Version None)
Quarter: 2010Q2

REPORT INFORMATION
  Report Type: 
  Country: None (occurrence: None)
  Receive Date: 20100507
  Receipt Date: 20100429
  Transmission Date: 20101027
  Serious: Yes (Other)
  Sender: FDA-Public Use
  Company Number: US-JNJFOC-20100408182

PATIENT
  Age: 70 Year
  Sex: Female
  Weight: 65.77 kg

DRUGS (6)
  1. TYLENOL (CAPLET) [Suspect]
     Indication: ARTHRITIS
     Route: 048
  2. TYLENOL (CAPLET) [Suspect]
     Indication: HEADACHE
     Route: 048
  3. NORVASC [Concomitant]
     Indication: BLOOD PRESSURE
  4. ZANTAC [Concomitant]
     Indication: GASTROOESOPHAGEAL REFLUX DISEASE
  5. LASIX [Concomitant]
     Indication: SWELLING
     Route: 048
  6. ATIVAN [Concomitant]
     Indication: NERVOUSNESS

REACTIONS (1)
  - RENAL IMPAIRMENT [None]
